FAERS Safety Report 23543843 (Version 1)
Quarter: 2024Q1

REPORT INFORMATION
  Report Type: Spontaneous
  Country: GB (occurrence: GB)
  Receive Date: 20240220
  Receipt Date: 20240220
  Transmission Date: 20240410
  Serious: Yes (Other)
  Sender: FDA-Public Use
  Company Number: None

PATIENT
  Age: 48 Year
  Sex: Male

DRUGS (1)
  1. CIPROFLOXACIN [Suspect]
     Active Substance: CIPROFLOXACIN
     Indication: Bacterial infection
     Dosage: 750 MG, BID
     Route: 048
     Dates: start: 20240105, end: 20240127

REACTIONS (3)
  - Peripheral sensorimotor neuropathy [Recovering/Resolving]
  - Neuropathy peripheral [Recovering/Resolving]
  - Subacute inflammatory demyelinating polyneuropathy [None]

NARRATIVE: CASE EVENT DATE: 20240130
